FAERS Safety Report 16992141 (Version 1)
Quarter: 2019Q4

REPORT INFORMATION
  Report Type: Spontaneous
  Country: US (occurrence: US)
  Receive Date: 20191105
  Receipt Date: 20191105
  Transmission Date: 20200122
  Serious: Yes (Other)
  Sender: FDA-Public Use
  Company Number: US-CIPLA LTD.-2019US07168

PATIENT

DRUGS (2)
  1. BUDESONIDE. [Suspect]
     Active Substance: BUDESONIDE
     Dosage: UNK, MULTIPLE PUFFS THROUGHOUT THE DAY, (TEN-FOLD THE INTENDED DOSE)
  2. BUDESONIDE. [Suspect]
     Active Substance: BUDESONIDE
     Indication: CHRONIC OBSTRUCTIVE PULMONARY DISEASE
     Dosage: UNK

REACTIONS (5)
  - Hypotension [Recovered/Resolved]
  - Hypoglycaemia [Unknown]
  - Adrenocortical insufficiency acute [Unknown]
  - Overdose [Unknown]
  - Hypothalamic pituitary adrenal axis suppression [Unknown]
